FAERS Safety Report 18533756 (Version 1)
Quarter: 2020Q4

REPORT INFORMATION
  Report Type: Spontaneous
  Country: PL (occurrence: PL)
  Receive Date: 20201123
  Receipt Date: 20201123
  Transmission Date: 20210114
  Serious: Yes (Other)
  Sender: FDA-Public Use
  Company Number: PL-PFIZER INC-2020458789

PATIENT
  Age: 71 Year
  Sex: Male

DRUGS (2)
  1. PAMIDRONATE DISODIUM. [Suspect]
     Active Substance: PAMIDRONATE DISODIUM
     Indication: METASTASES TO BONE
     Dosage: 540 MG
  2. PAMIDRONATE DISODIUM. [Suspect]
     Active Substance: PAMIDRONATE DISODIUM
     Indication: PAIN

REACTIONS (3)
  - Glomerulosclerosis [Unknown]
  - Kidney fibrosis [Unknown]
  - Renal tubular atrophy [Unknown]
